FAERS Safety Report 7884480-5 (Version None)
Quarter: 2011Q4

REPORT INFORMATION
  Report Type: 
  Country: None (occurrence: None)
  Receive Date: 20111102
  Receipt Date: 20110915
  Transmission Date: 20120403
  Serious: Yes (Hospitalization)
  Sender: FDA-Public Use
  Company Number: JP-ROCHE-713541

PATIENT
  Sex: Female

DRUGS (24)
  1. RANIBIZUMAB [Suspect]
     Route: 050
  2. HYALURONATE SODIUM [Concomitant]
     Indication: PRODUCT USED FOR UNKNOWN INDICATION
     Dosage: UNK
  3. NEOMYCIN SULFATE [Concomitant]
     Indication: PRODUCT USED FOR UNKNOWN INDICATION
     Dosage: UNK
     Dates: start: 20100327, end: 20110427
  4. NEOMYCIN SULFATE [Concomitant]
     Dates: start: 20100602, end: 20110125
  5. RANIBIZUMAB [Suspect]
     Route: 031
  6. BETAMETHASONE SODIUM PHOSPHATE [Concomitant]
     Dates: start: 20100602, end: 20110125
  7. TEPRENONE [Concomitant]
     Dates: start: 20100603, end: 20110125
  8. AVASTIN [Suspect]
     Dates: start: 20110524
  9. RANIBIZUMAB [Suspect]
     Indication: AGE-RELATED MACULAR DEGENERATION
     Dosage: 0.05 ML, QD
     Route: 031
  10. RANIBIZUMAB [Suspect]
     Route: 050
  11. RANIBIZUMAB [Suspect]
     Route: 050
  12. LEVOFLOXACIN [Concomitant]
     Indication: PRODUCT USED FOR UNKNOWN INDICATION
     Dosage: UNK
     Dates: start: 20090801, end: 20100401
  13. FLUMETHOLON [Concomitant]
     Indication: PRODUCT USED FOR UNKNOWN INDICATION
     Dosage: UNK
     Dates: start: 20090916, end: 20100317
  14. HYALEIN [Concomitant]
     Indication: PRODUCT USED FOR UNKNOWN INDICATION
     Dosage: UNK
  15. TRIAMCINOLONE [Concomitant]
     Dates: start: 20101108, end: 20110530
  16. RANIBIZUMAB [Suspect]
     Route: 050
  17. RANIBIZUMAB [Suspect]
     Route: 050
  18. RANIBIZUMAB [Suspect]
     Route: 050
  19. PREDNISOLONE [Concomitant]
     Dates: start: 20100603, end: 20110530
  20. OLOPATADINE HYDROCHLORIDE [Concomitant]
     Dates: start: 20110312
  21. ASPIRIN [Concomitant]
     Dates: start: 20110525
  22. METHYLPREDNISOLONE ACETATE [Concomitant]
     Indication: PRODUCT USED FOR UNKNOWN INDICATION
     Dosage: UNK
     Dates: start: 20100327, end: 20110427
  23. AVASTIN [Suspect]
     Indication: PRODUCT USED FOR UNKNOWN INDICATION
     Dosage: UNK
     Route: 065
     Dates: start: 20100531
  24. AVASTIN [Suspect]
     Dates: start: 20110222

REACTIONS (7)
  - INAPPROPRIATE SCHEDULE OF DRUG ADMINISTRATION [None]
  - DRY EYE [None]
  - IRIDOCYCLITIS [None]
  - CONJUNCTIVITIS [None]
  - CONJUNCTIVITIS ALLERGIC [None]
  - UVEITIS [None]
  - OCULAR HYPERAEMIA [None]
